FAERS Safety Report 14127361 (Version 1)
Quarter: 2017Q4

REPORT INFORMATION
  Report Type: Spontaneous
  Country: US (occurrence: US)
  Receive Date: 20171026
  Receipt Date: 20171026
  Transmission Date: 20180321
  Serious: No
  Sender: FDA-Public Use
  Company Number: US-TEVA-723994ACC

PATIENT
  Age: 69 Year
  Sex: Male
  Weight: 74.91 kg

DRUGS (1)
  1. CARBIDOPA AND LEVODOPA [Suspect]
     Active Substance: CARBIDOPA\LEVODOPA
     Indication: PARKINSON^S DISEASE
     Dosage: 1DF=CARBIDOPA25MG/LEVODOPA100 MG
     Dates: start: 201610

REACTIONS (8)
  - Drug effect delayed [Unknown]
  - Urticaria [Recovered/Resolved]
  - Headache [Unknown]
  - Constipation [Recovered/Resolved]
  - Nausea [Unknown]
  - Tremor [Unknown]
  - Dizziness [Unknown]
  - Loss of personal independence in daily activities [Unknown]

NARRATIVE: CASE EVENT DATE: 201610
